FAERS Safety Report 17193062 (Version 1)
Quarter: 2019Q4

REPORT INFORMATION
  Report Type: Report from Study
  Country: None (occurrence: CO)
  Receive Date: 20191223
  Receipt Date: 20191223
  Transmission Date: 20200122
  Serious: Yes (Death, Hospitalization, Other)
  Sender: FDA-Public Use
  Company Number: CO-ABBVIE-16K-036-3043712-00

PATIENT
  Age: 48 Year
  Sex: Male
  Weight: 66 kg

DRUGS (4)
  1. IMBRUVICA [Suspect]
     Active Substance: IBRUTINIB
     Route: 048
     Dates: start: 20151127
  2. IMBRUVICA [Suspect]
     Active Substance: IBRUTINIB
     Indication: CHRONIC LYMPHOCYTIC LEUKAEMIA
     Route: 048
     Dates: end: 20160224
  3. IMBRUVICA [Suspect]
     Active Substance: IBRUTINIB
     Route: 048
     Dates: end: 20160307
  4. IMBRUVICA [Suspect]
     Active Substance: IBRUTINIB
     Route: 048
     Dates: start: 20160117

REACTIONS (17)
  - Depressed mood [Unknown]
  - Aphthous ulcer [Recovered/Resolved]
  - Product dose omission [Unknown]
  - Infarction [Fatal]
  - Erythema [Unknown]
  - Lymphadenopathy [Recovering/Resolving]
  - Feeling abnormal [Unknown]
  - Impaired work ability [Unknown]
  - Colitis [Fatal]
  - Disease progression [Fatal]
  - Chills [Unknown]
  - Ear infection [Recovered/Resolved]
  - Myocardial infarction [Fatal]
  - Depression [Unknown]
  - Headache [Unknown]
  - Dysphagia [Unknown]
  - Pyrexia [Not Recovered/Not Resolved]

NARRATIVE: CASE EVENT DATE: 20160217
